FAERS Safety Report 7039295-7 (Version None)
Quarter: 2010Q3

REPORT INFORMATION
  Report Type: 
  Country: None (occurrence: None)
  Receive Date: 20100930
  Receipt Date: 20100917
  Transmission Date: 20110219
  Serious: Yes (Life-Threatening)
  Sender: FDA-Public Use
  Company Number: OMX-2010-00081

PATIENT
  Sex: Female

DRUGS (1)
  1. EVICEL [Suspect]
     Indication: PLACENTA ACCRETA
     Dosage: 3X5ML KITS, TOPICAL
     Route: 061

REACTIONS (2)
  - DRUG INEFFECTIVE [None]
  - HYSTERECTOMY [None]
